FAERS Safety Report 12133874 (Version 2)
Quarter: 2016Q2

REPORT INFORMATION
  Report Type: Spontaneous
  Country: US (occurrence: US)
  Receive Date: 20160301
  Receipt Date: 20160421
  Transmission Date: 20160815
  Serious: Yes (Other)
  Sender: FDA-Public Use
  Company Number: US-BAYER-2016-037738

PATIENT
  Age: 29 Year
  Sex: Female
  Weight: 77 kg

DRUGS (5)
  1. TYLENOL [Concomitant]
     Active Substance: ACETAMINOPHEN
     Dosage: UNK
     Dates: start: 20160111
  2. CYTOTEC [Concomitant]
     Active Substance: MISOPROSTOL
     Dosage: UNK
     Dates: start: 20160111
  3. SKYLA [Suspect]
     Active Substance: LEVONORGESTREL
     Indication: CONTRACEPTION
     Dosage: 14 MCG/24HR, CONT
     Route: 015
     Dates: start: 20160111, end: 20160209
  4. SKYLA [Suspect]
     Active Substance: LEVONORGESTREL
     Indication: MENORRHAGIA
  5. BETADINE [Concomitant]
     Active Substance: POVIDONE-IODINE
     Dosage: UNK
     Route: 015
     Dates: start: 20160111

REACTIONS (7)
  - Procedural pain [None]
  - Genital haemorrhage [None]
  - Device expulsion [None]
  - Abdominal pain lower [None]
  - Procedural haemorrhage [None]
  - Post procedural discomfort [None]
  - Procedural pain [None]

NARRATIVE: CASE EVENT DATE: 2016
